FAERS Safety Report 22968968 (Version 4)
Quarter: 2023Q4

REPORT INFORMATION
  Report Type: Spontaneous
  Country: CA (occurrence: CA)
  Receive Date: 20230922
  Receipt Date: 20231123
  Transmission Date: 20240110
  Serious: Yes (Other)
  Sender: FDA-Public Use
  Company Number: CA-CELLTRION INC.-2022CA011497

PATIENT

DRUGS (19)
  1. INFLECTRA [Suspect]
     Active Substance: INFLIXIMAB-DYYB
     Indication: Crohn^s disease
     Dosage: 20 MG/KG, EVERY 4 WEEKS (1200 MG, EVERY 4 WEEKS)
     Route: 042
     Dates: start: 20220704
  2. INFLECTRA [Suspect]
     Active Substance: INFLIXIMAB-DYYB
     Dosage: 1200 MG (SUPPOSED TO RECEIVE 20 MG/KG EVERY 4 WEEKS)
     Route: 042
     Dates: start: 20220728
  3. INFLECTRA [Suspect]
     Active Substance: INFLIXIMAB-DYYB
     Dosage: 1200 MG (SUPPOSED TO RECEIVE 20 MG/KG EVERY 4 WEEKS)
     Route: 042
     Dates: start: 20220728
  4. INFLECTRA [Suspect]
     Active Substance: INFLIXIMAB-DYYB
     Dosage: 1200 MG (SUPPOSED TO RECEIVE 20 MG/KG EVERY 4 WEEKS)
     Route: 042
     Dates: start: 20220728
  5. INFLECTRA [Suspect]
     Active Substance: INFLIXIMAB-DYYB
     Dosage: 20 MG/KG EVERY 4 WEEKS
     Route: 042
     Dates: start: 20220829
  6. INFLECTRA [Suspect]
     Active Substance: INFLIXIMAB-DYYB
     Dosage: 20 MG/KG EVERY 4 WEEKS
     Route: 042
     Dates: start: 20220922
  7. INFLECTRA [Suspect]
     Active Substance: INFLIXIMAB-DYYB
     Dosage: 20 MG/KG EVERY 4 WEEKS
     Route: 042
     Dates: start: 20221020
  8. INFLECTRA [Suspect]
     Active Substance: INFLIXIMAB-DYYB
     Dosage: 20 MG/KG, EVERY 4 WEEKS
     Route: 042
     Dates: start: 20221121
  9. INFLECTRA [Suspect]
     Active Substance: INFLIXIMAB-DYYB
     Dosage: 20 MG/KG, EVERY 4 WEEKS
     Route: 042
     Dates: start: 20221220
  10. INFLECTRA [Suspect]
     Active Substance: INFLIXIMAB-DYYB
     Dosage: 1280 MG (20MG/KG) Q4WEEKS
     Route: 042
     Dates: start: 20230222, end: 20230222
  11. INFLECTRA [Suspect]
     Active Substance: INFLIXIMAB-DYYB
     Dosage: 1280 MG (20MG/KG) EVERY 4 WEEKS
     Route: 042
     Dates: start: 20230419
  12. INFLECTRA [Suspect]
     Active Substance: INFLIXIMAB-DYYB
     Dosage: 1280 MG (20MG/KG) EVERY 4 WEEKS
     Route: 042
     Dates: start: 20230524
  13. INFLECTRA [Suspect]
     Active Substance: INFLIXIMAB-DYYB
     Dosage: 1200 MG (20MG/KG) EVERY 4 WEEKS
     Route: 042
     Dates: start: 20230623
  14. INFLECTRA [Suspect]
     Active Substance: INFLIXIMAB-DYYB
     Dosage: 20MG/KG, EVERY 4 WEEKS
     Route: 042
     Dates: start: 20230817
  15. INFLECTRA [Suspect]
     Active Substance: INFLIXIMAB-DYYB
     Dosage: 1260 MG (20MG/KG), EVERY 4 WEEKS
     Route: 042
     Dates: start: 20230913
  16. INFLECTRA [Suspect]
     Active Substance: INFLIXIMAB-DYYB
     Dosage: 20 MG/KG, EVERY 4 WEEKS
     Route: 042
     Dates: start: 20231011
  17. INFLECTRA [Suspect]
     Active Substance: INFLIXIMAB-DYYB
     Dosage: 1180 MG, EVERY 4 WEEK
     Route: 042
     Dates: start: 20231114
  18. CEFADROXIL [CEFADROXIL MONOHYDRATE] [Concomitant]
     Dosage: 500 MG, 2X/DAY
     Route: 065
     Dates: start: 20221209, end: 20221219
  19. CEFADROXIL [CEFADROXIL MONOHYDRATE] [Concomitant]
     Dosage: 500 MG, 4X/DAY (4 PILLS PER DAY) X 10 DAYS

REACTIONS (11)
  - Condition aggravated [Not Recovered/Not Resolved]
  - Therapeutic response shortened [Unknown]
  - Condition aggravated [Recovered/Resolved]
  - Cough [Not Recovered/Not Resolved]
  - Skin bacterial infection [Recovered/Resolved]
  - Pyrexia [Recovered/Resolved]
  - Arthralgia [Not Recovered/Not Resolved]
  - Myalgia [Not Recovered/Not Resolved]
  - COVID-19 [Recovered/Resolved]
  - Off label use [Unknown]
  - Off label use [Unknown]

NARRATIVE: CASE EVENT DATE: 20220704
